FAERS Safety Report 5584793-6 (Version None)
Quarter: 2008Q1

REPORT INFORMATION
  Report Type: 
  Country: None (occurrence: None)
  Receive Date: 20080103
  Receipt Date: 20071219
  Transmission Date: 20080703
  Serious: Yes (Hospitalization)
  Sender: FDA-Public Use
  Company Number: 2007S1013613

PATIENT
  Sex: Female

DRUGS (2)
  1. AZATHIOPRINE [Suspect]
     Indication: PEMPHIGUS
  2. CYCLOSPORINE [Suspect]
     Indication: PEMPHIGUS

REACTIONS (3)
  - BREAST CANCER [None]
  - GAIT DISTURBANCE [None]
  - PAIN [None]
